FAERS Safety Report 15857029 (Version 2)
Quarter: 2019Q1

REPORT INFORMATION
  Report Type: Spontaneous
  Country: GB (occurrence: GB)
  Receive Date: 20190123
  Receipt Date: 20190123
  Transmission Date: 20190417
  Serious: Yes (Hospitalization)
  Sender: FDA-Public Use
  Company Number: PHHY2019GB008997

PATIENT
  Age: 56 Year
  Sex: Female

DRUGS (3)
  1. PREDNISOLONE. [Suspect]
     Active Substance: PREDNISOLONE
     Indication: BLEPHARITIS
     Dosage: UNK
     Route: 047
  2. CHLORAMPHENICOL [Suspect]
     Active Substance: CHLORAMPHENICOL
     Indication: BLEPHARITIS
     Dosage: UNK
     Route: 047
  3. DOXYCYCLINE. [Suspect]
     Active Substance: DOXYCYCLINE
     Indication: BLEPHARITIS
     Dosage: UNK
     Route: 048

REACTIONS (2)
  - Keratitis [Recovering/Resolving]
  - Stenotrophomonas infection [Recovering/Resolving]
